FAERS Safety Report 23324019 (Version 2)
Quarter: 2024Q1

REPORT INFORMATION
  Report Type: Report from Study
  Country: CO (occurrence: CO)
  Receive Date: 20231221
  Receipt Date: 20240110
  Transmission Date: 20240410
  Serious: Yes (Other)
  Sender: FDA-Public Use
  Company Number: CO-ABBVIE-5409665

PATIENT
  Sex: Male
  Weight: 72 kg

DRUGS (2)
  1. SKYRIZI [Suspect]
     Active Substance: RISANKIZUMAB-RZAA
     Indication: Psoriasis
     Dosage: 2 SYRINGES OF 75 MILLIGRAM EQUAL TO 150 MILLIGRAM
     Route: 058
     Dates: start: 20211104, end: 20230515
  2. SKYRIZI [Suspect]
     Active Substance: RISANKIZUMAB-RZAA
     Dosage: FORM STRENGTH: 150MILLIGRAM
     Route: 058
     Dates: start: 20231222

REACTIONS (2)
  - Umbilical hernia [Recovered/Resolved]
  - Post procedural complication [Unknown]
